FAERS Safety Report 14403072 (Version 1)
Quarter: 2018Q1

REPORT INFORMATION
  Report Type: Spontaneous
  Country: US (occurrence: US)
  Receive Date: 20180117
  Receipt Date: 20180117
  Transmission Date: 20180509
  Serious: No
  Sender: FDA-Public Use
  Company Number: US-MISSION PHARMACAL COMPANY-2040215

PATIENT
  Age: 55 Year
  Sex: Female

DRUGS (2)
  1. UNSPECIFICED ANTIBIOTIC [Concomitant]
     Route: 065
  2. THIOLA [Suspect]
     Active Substance: TIOPRONIN
     Indication: CYSTINURIA
     Route: 065
     Dates: start: 20150211

REACTIONS (1)
  - Paraesthesia [Unknown]
